FAERS Safety Report 7883296-3 (Version None)
Quarter: 2011Q4

REPORT INFORMATION
  Report Type: 
  Country: None (occurrence: None)
  Receive Date: 20111102
  Receipt Date: 20111027
  Transmission Date: 20120403
  Serious: Yes (Death)
  Sender: FDA-Public Use
  Company Number: PHEH2011US06580

PATIENT
  Sex: Male
  Weight: 78.458 kg

DRUGS (1)
  1. EXJADE [Suspect]
     Indication: HAEMOCHROMATOSIS
     Dosage: 3000 MG, QD
     Route: 048
     Dates: start: 20060621

REACTIONS (1)
  - DEATH [None]
